FAERS Safety Report 6376775-1 (Version None)
Quarter: 2009Q3

REPORT INFORMATION
  Report Type: 
  Country: None (occurrence: None)
  Receive Date: 20090925
  Receipt Date: 20090916
  Transmission Date: 20100115
  Serious: Yes (Other)
  Sender: FDA-Public Use
  Company Number: US-ASTRAZENECA-2009SE13758

PATIENT
  Age: 94 Year
  Sex: Male

DRUGS (4)
  1. TOPROL-XL [Suspect]
     Indication: ATRIAL FIBRILLATION
     Route: 048
     Dates: start: 20081201
  2. LASIX [Concomitant]
  3. ASPIRIN [Concomitant]
  4. DIGOXIN [Concomitant]

REACTIONS (3)
  - OEDEMA PERIPHERAL [None]
  - PERIPHERAL COLDNESS [None]
  - RENAL IMPAIRMENT [None]
